FAERS Safety Report 8398226-8 (Version None)
Quarter: 2012Q2

REPORT INFORMATION
  Report Type: 
  Country: None (occurrence: None)
  Receive Date: 20120323
  Receipt Date: 20110113
  Transmission Date: 20120825
  Serious: Yes (Other)
  Sender: FDA-Public Use
  Company Number: 163-21880-11011319

PATIENT
  Age: 94 Year
  Sex: Female
  Weight: 47 kg

DRUGS (9)
  1. TOPROL-XL [Concomitant]
  2. PEPCID [Concomitant]
  3. PLAVIX [Concomitant]
  4. NORVASC [Concomitant]
  5. NITROGLYCERIN [Concomitant]
  6. REVLIMID [Suspect]
     Indication: MYELODYSPLASTIC SYNDROME
     Dosage: 10 MG, QD, PO; 5 MG, QOD, PO
     Route: 048
     Dates: start: 20101217, end: 20101227
  7. LASIX [Concomitant]
  8. ISOSORBIDE MONONITRATE [Concomitant]
  9. FOSAMAX [Concomitant]

REACTIONS (2)
  - SYNCOPE [None]
  - FATIGUE [None]
